FAERS Safety Report 9953086 (Version 1)
Quarter: 2014Q1

REPORT INFORMATION
  Report Type: Report from Study
  Country: US (occurrence: US)
  Receive Date: 20140304
  Receipt Date: 20140304
  Transmission Date: 20141002
  Serious: No
  Sender: FDA-Public Use
  Company Number: US-ABBVIE-13P-163-1076987-00

PATIENT
  Age: 63 Year
  Sex: Female

DRUGS (1)
  1. HUMIRA [Suspect]
     Indication: RHEUMATOID ARTHRITIS
     Dates: start: 20130104, end: 20130111

REACTIONS (5)
  - Malaise [Unknown]
  - Asthenia [Unknown]
  - Abdominal pain upper [Unknown]
  - Aphagia [Unknown]
  - Weight decreased [Unknown]
